FAERS Safety Report 4350737-8 (Version None)
Quarter: 2004Q2

REPORT INFORMATION
  Report Type: 
  Country: None (occurrence: None)
  Receive Date: 20040427
  Receipt Date: 20040414
  Transmission Date: 20050107
  Serious: Yes (Other)
  Sender: FDA-Public Use
  Company Number: 2004-DE-02030GD

PATIENT
  Age: 77 Year
  Sex: Female

DRUGS (9)
  1. CLONIDINE [Suspect]
     Indication: NEUROPATHIC PAIN
     Dosage: 150 MCG, IT
     Route: 037
  2. ACETAMINOPHEN [Suspect]
     Indication: NEUROPATHIC PAIN
     Dosage: 4G
  3. AMITRIPTYLINE HCL [Suspect]
     Indication: NEUROPATHIC PAIN
     Dosage: 25 MG
  4. GABAPENTIN [Suspect]
     Indication: NEUROPATHIC PAIN
     Dosage: 1800 MG
  5. DEXAMETHASONE [Suspect]
     Indication: NEUROPATHIC PAIN
     Dosage: 4.5 MG
  6. FENTANYL [Suspect]
     Indication: NEUROPATHIC PAIN
     Dosage: 7.2 MG, TD
     Route: 062
  7. MORPHINE [Suspect]
     Indication: NEUROPATHIC PAIN
     Dosage: SEE IMAGE
     Route: 038
  8. BUPIVACAINE [Suspect]
     Indication: NEUROPATHIC PAIN
     Dosage: 60 MG, IT
     Route: 037
  9. KETAMINE HCL [Suspect]
     Indication: NEUROPATHIC PAIN
     Dosage: 20 MG, IT
     Route: 038

REACTIONS (9)
  - DRUG INEFFECTIVE [None]
  - DRUG TOLERANCE DECREASED [None]
  - DRUG TOLERANCE INCREASED [None]
  - METASTASES TO SPINE [None]
  - MOTOR DYSFUNCTION [None]
  - NAUSEA [None]
  - REFUSAL OF TREATMENT BY PATIENT [None]
  - SOMNOLENCE [None]
  - VOMITING [None]
